FAERS Safety Report 10168480 (Version 1)
Quarter: 2014Q2

REPORT INFORMATION
  Report Type: Report from Study
  Country: US (occurrence: US)
  Receive Date: 20140513
  Receipt Date: 20140513
  Transmission Date: 20141212
  Serious: Yes (Other)
  Sender: FDA-Public Use
  Company Number: US-IPSEN BIOPHARMACEUTICALS, INC.-2014-2250

PATIENT
  Age: 42 Year
  Sex: Male

DRUGS (1)
  1. SOMATULINE DEPOT INJECTION (90MG) [Suspect]
     Indication: ACROMEGALY
     Dosage: 90MG
     Route: 058
     Dates: start: 20101201

REACTIONS (1)
  - Pituitary tumour removal [Recovered/Resolved]
